FAERS Safety Report 7782751-4 (Version None)
Quarter: 2011Q3

REPORT INFORMATION
  Report Type: 
  Country: None (occurrence: None)
  Receive Date: 20110928
  Receipt Date: 20110923
  Transmission Date: 20111222
  Serious: Yes (Other)
  Sender: FDA-Public Use
  Company Number: US-PFIZER INC-2011227644

PATIENT
  Sex: Male
  Weight: 108 kg

DRUGS (2)
  1. LATANOPROST [Suspect]
     Indication: INTRAOCULAR PRESSURE INCREASED
  2. LATANOPROST [Suspect]
     Indication: GLAUCOMA
     Dosage: 1 GTT, BOTH EYES
     Route: 047
     Dates: end: 20110922

REACTIONS (4)
  - EYE INFECTION [None]
  - GLAUCOMA [None]
  - EYE DISORDER [None]
  - EYE IRRITATION [None]
